FAERS Safety Report 7986863-1 (Version None)
Quarter: 2011Q4

REPORT INFORMATION
  Report Type: 
  Country: None (occurrence: None)
  Receive Date: 20111216
  Receipt Date: 20110321
  Transmission Date: 20120403
  Serious: No
  Sender: FDA-Public Use
  Company Number: US-BRISTOL-MYERS SQUIBB COMPANY-15579568

PATIENT
  Age: 33 Year
  Sex: Male
  Weight: 88 kg

DRUGS (4)
  1. ZOLOFT [Suspect]
  2. DESOXYN [Suspect]
  3. ABILIFY [Suspect]
     Indication: DEPRESSION
     Dosage: 1DF=1/2 TABLET OF 5MG IN THE MORNING AND SOMETIMES HE TAKES A WHOLE ONE.ALSO TAKEN AS A CONMED.
     Route: 048
     Dates: start: 20110112
  4. TRAZODONE HCL [Concomitant]

REACTIONS (1)
  - DRUG SCREEN POSITIVE [None]
